FAERS Safety Report 21578392 (Version 1)
Quarter: 2022Q4

REPORT INFORMATION
  Report Type: Spontaneous
  Country: US (occurrence: US)
  Receive Date: 20221110
  Receipt Date: 20221110
  Transmission Date: 20230113
  Serious: No
  Sender: FDA-Public Use
  Company Number: US-ALKERMES INC.-ALK-2022-005441

PATIENT
  Age: 22 Year
  Sex: Male

DRUGS (2)
  1. ARISTADA [Suspect]
     Active Substance: ARIPIPRAZOLE LAUROXIL
     Indication: Schizoaffective disorder
     Dosage: 662 MILLIGRAM, QMO
     Route: 030
     Dates: start: 20220428
  2. ARISTADA [Suspect]
     Active Substance: ARIPIPRAZOLE LAUROXIL
     Indication: Product used for unknown indication

REACTIONS (3)
  - Dyskinesia [Unknown]
  - Inappropriate schedule of product administration [Recovered/Resolved]
  - Off label use [Not Recovered/Not Resolved]

NARRATIVE: CASE EVENT DATE: 20220428
